FAERS Safety Report 20584083 (Version 1)
Quarter: 2022Q1

REPORT INFORMATION
  Report Type: Spontaneous
  Country: US (occurrence: US)
  Receive Date: 20220311
  Receipt Date: 20220311
  Transmission Date: 20220424
  Serious: No
  Sender: FDA-Public Use
  Company Number: US-BAYER-2022A035004

PATIENT

DRUGS (2)
  1. MIRALAX [Suspect]
     Active Substance: POLYETHYLENE GLYCOL 3350
     Dosage: A TEASPOON
     Route: 048
  2. TRAMADOL [Concomitant]
     Active Substance: TRAMADOL

REACTIONS (1)
  - Product use issue [Unknown]
